FAERS Safety Report 9205155 (Version 1)
Quarter: 2013Q2

REPORT INFORMATION
  Report Type: Spontaneous
  Country: US (occurrence: None)
  Receive Date: 20130401
  Receipt Date: 20130401
  Transmission Date: 20140414
  Serious: Yes (Hospitalization)
  Sender: FDA-Public Use
  Company Number: None

PATIENT
  Age: 69 Year
  Sex: Female
  Weight: 106 kg

DRUGS (1)
  1. MEMANTINE [Suspect]
     Indication: SMOKING CESSATION THERAPY
     Dosage: DAY 1-3 10MG DAILY ORAL?DAY 4-81 20 MG DAILY ORAL
     Dates: start: 20130129, end: 20130317

REACTIONS (1)
  - Chronic obstructive pulmonary disease [None]
